FAERS Safety Report 7036794 (Version 8)
Quarter: 2013Q1

REPORT INFORMATION
  Report Type: Report from Study
  Country: JP (occurrence: JP)
  Receive Date: 20090630
  Receipt Date: 20130208
  Transmission Date: 20140127
  Serious: Yes (Life-Threatening, Hospitalization)
  Sender: FDA-Public Use
  Company Number: JP-BRISTOL-MYERS SQUIBB COMPANY-14680953

PATIENT
  Age: 55 Year
  Sex: Male
  Weight: 64 kg

DRUGS (8)
  1. ERBITUX SOLN FOR INF 5MG/ML [Suspect]
     Indication: COLON CANCER
     Route: 042
     Dates: start: 20090617, end: 20090617
  2. IRINOTECAN HCL [Concomitant]
     Indication: COLON CANCER
     Dosage: 28MAY09-03JUN09.
     Route: 041
     Dates: start: 20090617, end: 20090617
  3. VENA [Concomitant]
     Indication: PREMEDICATION
     Dosage: 5 DF- 5 TABS(AD), 50 MG ONCE DAILY
     Route: 048
     Dates: start: 20090617, end: 20090617
  4. CALONAL [Concomitant]
     Indication: PREMEDICATION
     Dosage: POWDER FOR ORAL SOLUTION;CALONAL 20 PERCENT
     Route: 048
     Dates: start: 20090617, end: 20090617
  5. MEROPEN [Concomitant]
     Indication: PYREXIA
     Route: 065
     Dates: start: 20090621
  6. MEROPEN [Concomitant]
     Indication: MALAISE
     Route: 065
     Dates: start: 20090621
  7. SULPERAZON [Concomitant]
     Indication: PYREXIA
     Route: 065
  8. SULPERAZON [Concomitant]
     Indication: MALAISE
     Route: 065

REACTIONS (1)
  - Meningitis listeria [Not Recovered/Not Resolved]
